FAERS Safety Report 5431329-6 (Version None)
Quarter: 2007Q3

REPORT INFORMATION
  Report Type: 
  Country: None (occurrence: None)
  Receive Date: 20070830
  Receipt Date: 20070420
  Transmission Date: 20080115
  Serious: No
  Sender: FDA-Public Use
  Company Number: A0648165A

PATIENT
  Age: 53 Year
  Sex: Female

DRUGS (11)
  1. WELLBUTRIN XL [Suspect]
     Indication: DEPRESSION
     Dosage: 150G TWICE PER DAY
     Route: 048
     Dates: start: 20040101
  2. SYNTHROID [Concomitant]
  3. ABILIFY [Concomitant]
  4. OXYCONTIN [Concomitant]
  5. ZYRTEC [Concomitant]
  6. PROTONIX [Concomitant]
  7. NEURONTIN [Concomitant]
  8. ESTRATEST [Concomitant]
  9. PROVIGIL [Concomitant]
  10. SINGULAIR [Concomitant]
  11. VITAMIN CAP [Concomitant]

REACTIONS (2)
  - PAROSMIA [None]
  - URINE ODOUR ABNORMAL [None]
